FAERS Safety Report 21444279 (Version 1)
Quarter: 2022Q4

REPORT INFORMATION
  Report Type: Spontaneous
  Country: US (occurrence: US)
  Receive Date: 20221012
  Receipt Date: 20221012
  Transmission Date: 20230112
  Serious: Yes (Hospitalization, Other)
  Sender: FDA-Public Use
  Company Number: US-CELLTRION INC.-2022US016333

PATIENT

DRUGS (4)
  1. INFLIXIMAB [Suspect]
     Active Substance: INFLIXIMAB
     Indication: Colitis ulcerative
     Dosage: 700 MG EVERY 6 WEEKS ( X30 INFLIXIMAB INFUSIONS)(8.64 MG/KG)
  2. INFLIXIMAB [Suspect]
     Active Substance: INFLIXIMAB
     Indication: Pustular psoriasis
     Dosage: 700 MG EVERY 5 WEEKS
  3. METHOTREXATE [Suspect]
     Active Substance: METHOTREXATE
     Indication: Colitis ulcerative
     Dosage: 20 MG WEEKLY
  4. METHOTREXATE [Suspect]
     Active Substance: METHOTREXATE
     Indication: Pustular psoriasis

REACTIONS (5)
  - Psoriasis [Unknown]
  - Meningitis listeria [Recovered/Resolved]
  - Bacteraemia [Recovered/Resolved]
  - Therapy partial responder [Unknown]
  - Off label use [Unknown]
